FAERS Safety Report 16956172 (Version 2)
Quarter: 2020Q4

REPORT INFORMATION
  Report Type: Spontaneous
  Country: CN (occurrence: CN)
  Receive Date: 20191024
  Receipt Date: 20201016
  Transmission Date: 20210113
  Serious: Yes (Death, Other)
  Sender: FDA-Public Use
  Company Number: CN-SUN PHARMACEUTICAL INDUSTRIES LTD-2019R1-224612

PATIENT
  Age: 21 Year
  Sex: Male

DRUGS (4)
  1. OXALIPLATIN. [Suspect]
     Active Substance: OXALIPLATIN
     Indication: COLORECTAL CANCER METASTATIC
     Dosage: 130 MG/M2, ON DAY 1
     Route: 042
     Dates: start: 20161118
  2. CETUXIMAB. [Suspect]
     Active Substance: CETUXIMAB
     Indication: COLORECTAL CANCER METASTATIC
     Dosage: 500 MG/M2, OVER 2 H ON DAY 1 EVERY 2 WEEKS
     Route: 042
     Dates: start: 20161118
  3. CAPECITABINE. [Suspect]
     Active Substance: CAPECITABINE
     Indication: COLORECTAL CANCER METASTATIC
     Dosage: BID, 1000 MG/M2, TWICE DAILY, WHICH WAS REPEATED EVERY 3 WEEKS
     Route: 048
     Dates: start: 20161118
  4. IRINOTECAN [Suspect]
     Active Substance: IRINOTECAN
     Indication: COLORECTAL CANCER METASTATIC
     Dosage: 180 MG/M2, OVER 30-90 MIN ON DAY 1
     Route: 042
     Dates: start: 20170331

REACTIONS (2)
  - Disease progression [Fatal]
  - Hypocalcaemia [Unknown]
